FAERS Safety Report 10447551 (Version 1)
Quarter: 2014Q3

REPORT INFORMATION
  Report Type: Spontaneous
  Country: ZA (occurrence: ZA)
  Receive Date: 20140911
  Receipt Date: 20140911
  Transmission Date: 20150326
  Serious: Yes (Death)
  Sender: FDA-Public Use
  Company Number: ZA-SA-2014SA121487

PATIENT
  Age: 82 Year
  Sex: Female

DRUGS (2)
  1. RENAGEL [Suspect]
     Active Substance: SEVELAMER HYDROCHLORIDE
     Route: 048
     Dates: start: 201303, end: 201406
  2. ASCORBIC ACID/FERROUS GLUCONATE/VITAMINS NOS [Concomitant]

REACTIONS (1)
  - Death [Fatal]
